FAERS Safety Report 15114272 (Version 1)
Quarter: 2018Q2

REPORT INFORMATION
  Report Type: Spontaneous
  Country: US (occurrence: US)
  Receive Date: 20180612
  Receipt Date: 20180612
  Transmission Date: 20180711
  Serious: Yes (Disabling)
  Sender: FDA-Public Use
  Company Number: None

PATIENT
  Age: 104 Year
  Sex: Female
  Weight: 59.87 kg

DRUGS (10)
  1. OUETIAPINE, EQUIVALENT TO SEROQUEL 25MG [Suspect]
     Active Substance: QUETIAPINE
     Indication: CYCLOTHYMIC DISORDER
     Dosage: ?          QUANTITY:1 ;?
     Route: 048
     Dates: start: 2008, end: 20180523
  2. OMEPRAZOLE. [Concomitant]
     Active Substance: OMEPRAZOLE
  3. FISH OIL [Concomitant]
     Active Substance: FISH OIL
  4. ACETAMINOPHEN. [Concomitant]
     Active Substance: ACETAMINOPHEN
  5. VITAMIN E [Concomitant]
     Active Substance: .ALPHA.-TOCOPHEROL
  6. DIAZEPAM. [Concomitant]
     Active Substance: DIAZEPAM
  7. STRESS B COMPLEX [Concomitant]
  8. ECOTRIM [Concomitant]
  9. CENTRUM SILVER FOR WOMEN [Concomitant]
     Active Substance: MINERALS\VITAMINS
  10. ESTER-C [Concomitant]
     Active Substance: CALCIUM\VITAMINS

REACTIONS (5)
  - Hypersomnia [None]
  - Product substitution issue [None]
  - Apathy [None]
  - Laziness [None]
  - Drug hypersensitivity [None]
